FAERS Safety Report 5499245-1 (Version None)
Quarter: 2007Q4

REPORT INFORMATION
  Report Type: 
  Country: None (occurrence: None)
  Receive Date: 20071026
  Receipt Date: 20071017
  Transmission Date: 20080405
  Serious: Yes (Death, Hospitalization)
  Sender: FDA-Public Use
  Company Number: US-JNJFOC-20061204571

PATIENT
  Sex: Female
  Weight: 52.16 kg

DRUGS (8)
  1. ORTHO EVRA [Suspect]
     Indication: CONTRACEPTION
     Route: 062
  2. GLUCOPHAGE [Concomitant]
  3. LIPITOR [Concomitant]
  4. ALTACE [Concomitant]
  5. MOTRIN [Concomitant]
  6. NEURONTIN [Concomitant]
  7. LORTAB [Concomitant]
  8. LANTUS [Concomitant]

REACTIONS (2)
  - CEREBROVASCULAR ACCIDENT [None]
  - PNEUMONIA ASPIRATION [None]
